FAERS Safety Report 12571379 (Version 1)
Quarter: 2016Q3

REPORT INFORMATION
  Report Type: Spontaneous
  Country: None (occurrence: US)
  Receive Date: 20160719
  Receipt Date: 20160719
  Transmission Date: 20161109
  Serious: Yes (Hospitalization)
  Sender: FDA-Public Use
  Company Number: US-RARE DISEASE THERAPEUTICS, INC.-1055256

PATIENT
  Age: 32 Year
  Sex: Male
  Weight: 84 kg

DRUGS (13)
  1. CYSTADANE [Suspect]
     Active Substance: BETAINE
     Indication: METHYLENETETRAHYDROFOLATE REDUCTASE DEFICIENCY
     Dates: start: 1995
  2. HYDROXYZINE PAMOATE. [Concomitant]
     Active Substance: HYDROXYZINE PAMOATE
  3. VITAMIN B12 [Concomitant]
     Active Substance: CYANOCOBALAMIN
  4. L-METHYLFOLATE CALCIUM [Concomitant]
     Active Substance: LEVOMEFOLATE CALCIUM
  5. POTASSIUM GLUCONATE [Concomitant]
     Active Substance: POTASSIUM GLUCONATE
  6. TIZANIDINE. [Concomitant]
     Active Substance: TIZANIDINE
  7. CYSTADANE [Suspect]
     Active Substance: BETAINE
     Route: 048
     Dates: start: 20140722
  8. RANITIDINE. [Concomitant]
     Active Substance: RANITIDINE
  9. MULTIVITAMINS PLUS IRON [Concomitant]
  10. VITAMIN B-6 [Concomitant]
     Active Substance: PYRIDOXINE
  11. LORTAB [Concomitant]
     Active Substance: ACETAMINOPHEN\HYDROCODONE BITARTRATE
  12. GABAPENTIN. [Concomitant]
     Active Substance: GABAPENTIN
  13. LORAZEPAM. [Concomitant]
     Active Substance: LORAZEPAM

REACTIONS (2)
  - Constipation [Recovered/Resolved]
  - Prescribed overdose [None]

NARRATIVE: CASE EVENT DATE: 20160604
